FAERS Safety Report 11318988 (Version 2)
Quarter: 2015Q4

REPORT INFORMATION
  Report Type: Spontaneous
  Country: US (occurrence: US)
  Receive Date: 20150729
  Receipt Date: 20151007
  Transmission Date: 20160304
  Serious: No
  Sender: FDA-Public Use
  Company Number: US-ACTELION PHARMACEUTICALS US, INC.-A-NJ2015-120751

PATIENT
  Age: 38 Year
  Sex: Female

DRUGS (3)
  1. REMODULIN [Concomitant]
     Active Substance: TREPROSTINIL
     Route: 058
  2. OPSUMIT [Suspect]
     Active Substance: MACITENTAN
     Indication: PULMONARY ARTERIAL HYPERTENSION
     Dosage: 10 MG, QD
     Route: 048
     Dates: start: 20140717
  3. RIOCIGUAT [Concomitant]
     Active Substance: RIOCIGUAT

REACTIONS (8)
  - Catheter management [Unknown]
  - Swelling [Unknown]
  - Infusion site pain [Unknown]
  - Infusion site erythema [Unknown]
  - Pyrexia [Unknown]
  - Infusion site discharge [Unknown]
  - Infusion site infection [Unknown]
  - Infusion site warmth [Unknown]
